FAERS Safety Report 25679959 (Version 1)
Quarter: 2025Q3

REPORT INFORMATION
  Report Type: Spontaneous
  Country: US (occurrence: US)
  Receive Date: 20250814
  Receipt Date: 20250814
  Transmission Date: 20251020
  Serious: No
  Sender: INSYS
  Company Number: US-INSYS Therapeutics, Inc-INS201605-BEN202411-000013

PATIENT
  Age: 49 Year
  Sex: Female
  Weight: 45.35 kg

DRUGS (5)
  1. DRONABINOL [Suspect]
     Active Substance: DRONABINOL
     Indication: Appetite disorder
     Dates: start: 20240909, end: 20241106
  2. DRONABINOL [Suspect]
     Active Substance: DRONABINOL
     Dates: start: 20241106
  3. CANNABIS SATIVA SUBSP. INDICA TOP [Suspect]
     Active Substance: CANNABIS SATIVA SUBSP. INDICA TOP
     Indication: Product used for unknown indication
  4. XANAX [Concomitant]
     Active Substance: ALPRAZOLAM
     Indication: Product used for unknown indication
  5. XANAX [Concomitant]
     Active Substance: ALPRAZOLAM
     Dates: start: 20241107

REACTIONS (9)
  - Vision blurred [Recovered/Resolved]
  - Euphoric mood [Recovered/Resolved]
  - Nausea [Recovered/Resolved]
  - Feeding disorder [Recovered/Resolved]
  - Gastritis [Recovered/Resolved]
  - Illness [Recovered/Resolved]
  - Drug withdrawal syndrome [Unknown]
  - Product dose omission issue [Unknown]
  - Product use in unapproved indication [Unknown]

NARRATIVE: CASE EVENT DATE: 20241106
